FAERS Safety Report 21108508 (Version 1)
Quarter: 2022Q3

REPORT INFORMATION
  Report Type: Spontaneous
  Country: CN (occurrence: CN)
  Receive Date: 20220721
  Receipt Date: 20220721
  Transmission Date: 20221026
  Serious: Yes (Hospitalization, Other)
  Sender: FDA-Public Use
  Company Number: None

PATIENT
  Age: 78 Year
  Sex: Female

DRUGS (5)
  1. CYCLOPHOSPHAMIDE [Suspect]
     Active Substance: CYCLOPHOSPHAMIDE
     Indication: B-cell lymphoma
     Dosage: FIRST CYCLE OF MINI R-CHOP CHEMOTHERAPY, D1
     Route: 041
     Dates: start: 20220527, end: 20220527
  2. RITUXIMAB [Suspect]
     Active Substance: RITUXIMAB
     Indication: B-cell lymphoma
     Dosage: FIRST CYCLE OF MINI R-CHOP CHEMOTHERAPY, D0
     Route: 041
     Dates: start: 20220526, end: 20220526
  3. VINDESINE SULFATE [Suspect]
     Active Substance: VINDESINE SULFATE
     Indication: B-cell lymphoma
     Dosage: FIRST CYCLE OF MINI R-CHOP CHEMOTHERAPY, D1
     Route: 041
     Dates: start: 20220527, end: 20220527
  4. DOXORUBICIN HYDROCHLORIDE [Suspect]
     Active Substance: DOXORUBICIN HYDROCHLORIDE
     Indication: B-cell lymphoma
     Dosage: FIRST CYCLE OF MINI R-CHOP CHEMOTHERAPY, D1
     Route: 041
     Dates: start: 20220527, end: 20220527
  5. PREDNISONE ACETATE [Suspect]
     Active Substance: PREDNISONE ACETATE
     Indication: B-cell lymphoma
     Dosage: FIRST CYCLE OF MINI R-CHOP CHEMOTHERAPY, D1-D5
     Route: 041
     Dates: start: 20220527, end: 20220531

REACTIONS (4)
  - Altered state of consciousness [Unknown]
  - Agranulocytosis [Recovering/Resolving]
  - Pyrexia [Recovered/Resolved]
  - Myelosuppression [Recovering/Resolving]

NARRATIVE: CASE EVENT DATE: 20220604
